FAERS Safety Report 12082672 (Version 3)
Quarter: 2016Q2

REPORT INFORMATION
  Report Type: Report from Study
  Country: NL (occurrence: NL)
  Receive Date: 20160217
  Receipt Date: 20160513
  Transmission Date: 20160815
  Serious: Yes (Hospitalization, Other)
  Sender: FDA-Public Use
  Company Number: NL-AMGEN-NLDSL2016017634

PATIENT
  Age: 67 Year
  Sex: Female

DRUGS (1)
  1. NEULASTA [Suspect]
     Active Substance: PEGFILGRASTIM
     Indication: NEUTROPENIA
     Dosage: 10 MG/ML WWSP 0.6ML, 1.00 X PER 3 WEKEN
     Route: 058

REACTIONS (6)
  - Nausea [Unknown]
  - Arrhythmia [Recovered/Resolved]
  - Haemoglobin decreased [Unknown]
  - Heart rate increased [Unknown]
  - Decreased appetite [Unknown]
  - Dehydration [Unknown]

NARRATIVE: CASE EVENT DATE: 201601
